FAERS Safety Report 9258463 (Version 1)
Quarter: 2013Q2

REPORT INFORMATION
  Report Type: Spontaneous
  Country: TR (occurrence: TR)
  Receive Date: 20130426
  Receipt Date: 20130426
  Transmission Date: 20140414
  Serious: Yes (Death, Hospitalization)
  Sender: FDA-Public Use
  Company Number: PHHY2013TR040778

PATIENT
  Age: 79 Year
  Sex: Male

DRUGS (1)
  1. HEPARIN [Suspect]
     Indication: HAEMODIALYSIS

REACTIONS (8)
  - Septic shock [Fatal]
  - Sepsis [Unknown]
  - Gastrointestinal haemorrhage [Unknown]
  - Pyrexia [Unknown]
  - Heparin-induced thrombocytopenia [Unknown]
  - Platelet count decreased [Unknown]
  - Hypotension [Unknown]
  - Melaena [Unknown]
